FAERS Safety Report 12297669 (Version 1)
Quarter: 2016Q2

REPORT INFORMATION
  Report Type: Report from Study
  Country: US (occurrence: US)
  Receive Date: 20160422
  Receipt Date: 20160422
  Transmission Date: 20160815
  Serious: Yes (Life-Threatening, Other)
  Sender: FDA-Public Use
  Company Number: US-ABBVIE-16P-163-1608281-00

PATIENT
  Sex: Male

DRUGS (4)
  1. HUMIRA [Suspect]
     Active Substance: ADALIMUMAB
     Route: 063
  2. SUDAFED [Concomitant]
     Active Substance: PSEUDOEPHEDRINE HYDROCHLORIDE
     Indication: MATERNAL EXPOSURE TIMING UNSPECIFIED
  3. HUMIRA [Suspect]
     Active Substance: ADALIMUMAB
     Indication: MATERNAL EXPOSURE TIMING UNSPECIFIED
     Route: 064
  4. ADVIL [Concomitant]
     Active Substance: IBUPROFEN
     Indication: MATERNAL EXPOSURE TIMING UNSPECIFIED

REACTIONS (8)
  - Foetal exposure during pregnancy [Unknown]
  - Lethargy [Unknown]
  - Foetal distress syndrome [Recovered/Resolved]
  - Oxygen consumption decreased [Recovered/Resolved]
  - Blood glucose abnormal [Recovered/Resolved]
  - Umbilical cord around neck [Recovered/Resolved]
  - Meconium aspiration syndrome [Recovered/Resolved]
  - Exposure during breast feeding [Unknown]

NARRATIVE: CASE EVENT DATE: 2014
